FAERS Safety Report 23332756 (Version 1)
Quarter: 2023Q4

REPORT INFORMATION
  Report Type: Spontaneous
  Country: US (occurrence: US)
  Receive Date: 20231222
  Receipt Date: 20231222
  Transmission Date: 20240109
  Serious: Yes (Other)
  Sender: FDA-Public Use
  Company Number: US-PFIZER INC-PV202300204180

PATIENT

DRUGS (1)
  1. NARDIL [Suspect]
     Active Substance: PHENELZINE SULFATE
     Dosage: UNK

REACTIONS (12)
  - Suicide attempt [Unknown]
  - Nausea [Unknown]
  - Diarrhoea [Unknown]
  - Panic attack [Unknown]
  - Hyperhidrosis [Unknown]
  - Feeling cold [Unknown]
  - Nightmare [Unknown]
  - Loss of personal independence in daily activities [Unknown]
  - Pain [Unknown]
  - Blood disorder [Unknown]
  - Dyspnoea [Unknown]
  - Dysphagia [Unknown]
